FAERS Safety Report 24036755 (Version 1)
Quarter: 2024Q3

REPORT INFORMATION
  Report Type: Spontaneous
  Country: GB (occurrence: GB)
  Receive Date: 20240701
  Receipt Date: 20240701
  Transmission Date: 20241017
  Serious: Yes (Other)
  Sender: FRESENIUS KABI
  Company Number: None

PATIENT
  Sex: Female

DRUGS (5)
  1. ADALIMUMAB [Suspect]
     Active Substance: ADALIMUMAB\ISOPROPYL ALCOHOL
     Indication: Psoriatic arthropathy
     Dosage: 40MG EVERY OTHER WEEK?FORM OF ADMIN: SOLUTION FOR INFUSION
     Dates: start: 202403, end: 202406
  2. METHOTREXATE [Concomitant]
     Active Substance: METHOTREXATE
     Indication: Psoriatic arthropathy
     Dates: start: 2018
  3. FOLIC ACID [Concomitant]
     Active Substance: FOLIC ACID
     Indication: Psoriatic arthropathy
     Dates: start: 2018
  4. CELECOXIB [Concomitant]
     Active Substance: CELECOXIB
     Indication: Psoriatic arthropathy
     Dates: start: 2018
  5. OMEPRAZOLE [Concomitant]
     Active Substance: OMEPRAZOLE
     Indication: Product used for unknown indication
     Dates: start: 2018

REACTIONS (1)
  - Intrusive thoughts [Recovering/Resolving]

NARRATIVE: CASE EVENT DATE: 20240601
